FAERS Safety Report 7247201-5 (Version None)
Quarter: 2011Q1

REPORT INFORMATION
  Report Type: 
  Country: None (occurrence: None)
  Receive Date: 20110127
  Receipt Date: 20110119
  Transmission Date: 20110831
  Serious: Yes (Death, Other)
  Sender: FDA-Public Use
  Company Number: DE-GENZYME-CAMP-1001294

PATIENT
  Age: 55 Year
  Sex: Female

DRUGS (16)
  1. MYCOPHENOLATE MOFETIL [Concomitant]
     Indication: PROPHYLAXIS AGAINST GRAFT VERSUS HOST DISEASE
     Dosage: 30 MG/KG, QD
  2. ACYCLOVIR [Concomitant]
     Indication: INFECTION PROPHYLAXIS
  3. DACLIZUMAB [Concomitant]
     Indication: IMMUNOSUPPRESSANT DRUG THERAPY
  4. CAMPATH [Suspect]
     Indication: ACUTE GRAFT VERSUS HOST DISEASE
     Dosage: 3 MG, UNK
     Route: 042
  5. ETANERCEPT [Concomitant]
     Indication: IMMUNOSUPPRESSANT DRUG THERAPY
  6. ANTI-THYMOCYTE GLOBULIN NOS [Concomitant]
     Indication: PROPHYLAXIS AGAINST GRAFT VERSUS HOST DISEASE
     Dosage: UNK
  7. CAMPATH [Suspect]
     Dosage: 10 MG, UNK
     Route: 042
  8. TRIMETHOPRIM + SULFAMETHOXAZOLE [Concomitant]
     Indication: INFECTION PROPHYLAXIS
  9. TACROLIMUS [Concomitant]
     Indication: IMMUNOSUPPRESSANT DRUG THERAPY
  10. RITUXIMAB [Concomitant]
     Indication: IMMUNOSUPPRESSANT DRUG THERAPY
  11. CORTICOSTEROIDS [Concomitant]
     Indication: ACUTE GRAFT VERSUS HOST DISEASE
     Dosage: }=2 MG/KG/DAY FOR }= 7 DAYS
  12. CYCLOPHOSPHAMIDE [Suspect]
     Indication: STEM CELL TRANSPLANT
     Dosage: UNK
     Route: 065
  13. CAMPATH [Suspect]
     Dosage: 30 MG, UNK ON 4 OR 5 DAYS
     Route: 042
  14. CAMPATH [Suspect]
     Dosage: UNK 10-40MG ON 2 DAYS Q 3-4 WEEKS
     Route: 042
  15. CYCLOSPORINE [Concomitant]
     Indication: PROPHYLAXIS AGAINST GRAFT VERSUS HOST DISEASE
     Dosage: 3 MG/KG, QD STARTING DAY -1
  16. FLUCONAZOLE [Concomitant]
     Indication: INFECTION PROPHYLAXIS

REACTIONS (3)
  - PNEUMONIA [None]
  - CYTOMEGALOVIRUS INFECTION [None]
  - DEATH [None]
